FAERS Safety Report 7623636-3 (Version None)
Quarter: 2011Q3

REPORT INFORMATION
  Report Type: 
  Country: None (occurrence: None)
  Receive Date: 20110720
  Receipt Date: 20110707
  Transmission Date: 20111222
  Serious: No
  Sender: FDA-Public Use
  Company Number: US-JNJFOC-20110706723

PATIENT
  Sex: Female
  Weight: 54.43 kg

DRUGS (5)
  1. TRILEPTAL [Concomitant]
     Indication: TRIGEMINAL NEURALGIA
     Route: 048
     Dates: start: 20100101
  2. FENTANYL [Suspect]
     Indication: TRIGEMINAL NEURALGIA
     Route: 062
  3. FENTANYL [Suspect]
     Route: 062
     Dates: start: 20110628, end: 20110629
  4. LYRICA [Concomitant]
     Indication: TRIGEMINAL NEURALGIA
     Route: 048
     Dates: start: 20100101
  5. UNKNOWN MEDICATION [Concomitant]
     Indication: CONTRACEPTION
     Route: 048

REACTIONS (5)
  - DIZZINESS [None]
  - DYSSTASIA [None]
  - DRUG DOSE OMISSION [None]
  - INCORRECT DRUG ADMINISTRATION DURATION [None]
  - FEELING ABNORMAL [None]
